FAERS Safety Report 13388614 (Version 1)
Quarter: 2017Q1

REPORT INFORMATION
  Report Type: Spontaneous
  Country: GB (occurrence: GB)
  Receive Date: 20170330
  Receipt Date: 20170330
  Transmission Date: 20170429
  Serious: Yes (Other)
  Sender: FDA-Public Use
  Company Number: GB-TEVA-752676ACC

PATIENT
  Age: 28 Year
  Sex: Female
  Weight: 59.41 kg

DRUGS (1)
  1. MIRTAZAPINE. [Suspect]
     Active Substance: MIRTAZAPINE
     Indication: DEPRESSION
     Dosage: 15 MILLIGRAM DAILY;
     Route: 048
     Dates: start: 20160715, end: 20170215

REACTIONS (1)
  - Contusion [Recovered/Resolved]

NARRATIVE: CASE EVENT DATE: 20160801
